FAERS Safety Report 16211049 (Version 3)
Quarter: 2020Q2

REPORT INFORMATION
  Report Type: Spontaneous
  Country: CA (occurrence: CA)
  Receive Date: 20190418
  Receipt Date: 20200515
  Transmission Date: 20200713
  Serious: Yes (Life-Threatening, Hospitalization, Other)
  Sender: FDA-Public Use
  Company Number: CA-SA-2017SA020214

PATIENT
  Age: 3 Year
  Sex: Female
  Weight: 64 kg

DRUGS (32)
  1. HYDROXYCHLOROQUINE [Suspect]
     Active Substance: HYDROXYCHLOROQUINE
     Indication: JUVENILE IDIOPATHIC ARTHRITIS
     Dosage: 5 MG/KG,QD
     Route: 048
  2. IMMUNOGLOBULINS (IMMUNOGLOBULIN HUMAN NORMAL) [Suspect]
     Active Substance: HUMAN IMMUNOGLOBULIN G
     Dosage: 70 G,UNK
     Route: 042
  3. IMMUNOGLOBULINS (IMMUNOGLOBULIN HUMAN NORMAL) [Suspect]
     Active Substance: HUMAN IMMUNOGLOBULIN G
     Dosage: UNK
     Route: 042
     Dates: start: 200806, end: 200808
  4. METHOTREXATE. [Suspect]
     Active Substance: METHOTREXATE
     Indication: JUVENILE IDIOPATHIC ARTHRITIS
     Dosage: 15 MG/M2,QOW
     Route: 058
     Dates: start: 2005, end: 2014
  5. ADALIMUMAB [Suspect]
     Active Substance: ADALIMUMAB
     Indication: JUVENILE IDIOPATHIC ARTHRITIS
     Dosage: UNK UNK,UNK
     Route: 065
  6. FOLIC ACID. [Concomitant]
     Active Substance: FOLIC ACID
  7. ACTEMRA [Suspect]
     Active Substance: TOCILIZUMAB
     Indication: JUVENILE IDIOPATHIC ARTHRITIS
     Dosage: 280 MG,QOW
     Route: 042
     Dates: start: 20120227, end: 201203
  8. ACTEMRA [Suspect]
     Active Substance: TOCILIZUMAB
     Dosage: 280 MG, QW
     Route: 042
  9. ETANERCEPT [Suspect]
     Active Substance: ETANERCEPT
     Indication: JUVENILE IDIOPATHIC ARTHRITIS
     Dosage: 25 MG,QW
     Route: 058
  10. ETANERCEPT [Suspect]
     Active Substance: ETANERCEPT
     Dosage: 12.5 MG,QW
     Route: 058
     Dates: start: 200608, end: 200703
  11. TRIAMCINOLONE [Suspect]
     Active Substance: TRIAMCINOLONE
     Dosage: UNK UNK,UNK
     Route: 065
     Dates: end: 2014
  12. TOCILIZUMAB. [Suspect]
     Active Substance: TOCILIZUMAB
     Dosage: 280 MG, QCY (EVERY 2 WEEL)
     Route: 042
     Dates: start: 201110, end: 201203
  13. ANAKINRA [Suspect]
     Active Substance: ANAKINRA
     Indication: JUVENILE IDIOPATHIC ARTHRITIS
     Dosage: 50 MG,QD
     Route: 058
     Dates: start: 200808, end: 201007
  14. ENBREL [Suspect]
     Active Substance: ETANERCEPT
     Indication: JUVENILE IDIOPATHIC ARTHRITIS
     Dosage: 25 MG,QW
     Route: 058
     Dates: start: 200703, end: 200706
  15. HYDROXYCHLOROQUINE [Suspect]
     Active Substance: HYDROXYCHLOROQUINE
     Indication: RHEUMATOID ARTHRITIS
  16. PREDNISONE. [Suspect]
     Active Substance: PREDNISONE
     Dosage: 3 MG,BID
     Route: 048
  17. ANAKINRA [Suspect]
     Active Substance: ANAKINRA
     Dosage: 50 UNK
     Route: 058
  18. ORENCIA [Suspect]
     Active Substance: ABATACEPT
     Indication: JUVENILE IDIOPATHIC ARTHRITIS
     Dosage: 250 MG,UNK
     Route: 042
     Dates: start: 201007, end: 201009
  19. TRIAMCINOLONE HEXACETONIDE [Concomitant]
     Active Substance: TRIAMCINOLONE HEXACETONIDE
     Indication: JUVENILE IDIOPATHIC ARTHRITIS
     Route: 065
  20. PREDNISONE. [Suspect]
     Active Substance: PREDNISONE
     Indication: JUVENILE IDIOPATHIC ARTHRITIS
     Dosage: 5 MG,BID
     Route: 048
     Dates: start: 200502, end: 201501
  21. ISONIAZID/RIFAMPICIN [Suspect]
     Active Substance: ISONIAZID\RIFAMPIN
     Indication: JUVENILE IDIOPATHIC ARTHRITIS
     Dosage: UNK
     Route: 042
  22. INFLIXIMAB [Suspect]
     Active Substance: INFLIXIMAB
     Dosage: 5 MG,UNK
     Route: 042
     Dates: start: 200711, end: 200803
  23. TRIAMCINOLONE [Suspect]
     Active Substance: TRIAMCINOLONE
     Indication: JUVENILE IDIOPATHIC ARTHRITIS
     Dosage: UNK UNK,UNK
     Route: 065
     Dates: start: 201402, end: 2014
  24. NAPROXEN. [Suspect]
     Active Substance: NAPROXEN
     Indication: JUVENILE IDIOPATHIC ARTHRITIS
     Dosage: UNK UNK,UNK
     Route: 065
     Dates: start: 2005
  25. SULFASALAZINE. [Suspect]
     Active Substance: SULFASALAZINE
     Indication: JUVENILE IDIOPATHIC ARTHRITIS
     Dosage: 250 MG,QD
     Route: 048
     Dates: end: 2014
  26. METHOTREXATE. [Suspect]
     Active Substance: METHOTREXATE
     Dosage: UNK UNK,QW
     Route: 065
  27. IMMUNOGLOBULINS (IMMUNOGLOBULIN HUMAN NORMAL) [Suspect]
     Active Substance: HUMAN IMMUNOGLOBULIN G
     Indication: JUVENILE IDIOPATHIC ARTHRITIS
     Dosage: 70 G,UNK
     Route: 042
  28. PREDNISONE. [Suspect]
     Active Substance: PREDNISONE
     Dosage: 1.3 MG, BID
     Route: 065
  29. ABATACEPT [Suspect]
     Active Substance: ABATACEPT
     Indication: JUVENILE IDIOPATHIC ARTHRITIS
     Dosage: 250 MG,QM
     Route: 042
     Dates: start: 201007, end: 201009
  30. INFLIXIMAB [Suspect]
     Active Substance: INFLIXIMAB
     Indication: JUVENILE IDIOPATHIC ARTHRITIS
     Dosage: 3 MG/KG,UNK
     Route: 042
     Dates: start: 200707, end: 200711
  31. TOCILIZUMAB. [Suspect]
     Active Substance: TOCILIZUMAB
     Indication: JUVENILE IDIOPATHIC ARTHRITIS
     Dosage: 250 MG, QD
  32. HUMIRA [Suspect]
     Active Substance: ADALIMUMAB
     Indication: JUVENILE IDIOPATHIC ARTHRITIS
     Dosage: UNK
     Route: 058

REACTIONS (39)
  - Drug intolerance [Not Recovered/Not Resolved]
  - Diarrhoea [Recovered/Resolved]
  - Arthropathy [Not Recovered/Not Resolved]
  - Condition aggravated [Unknown]
  - Juvenile idiopathic arthritis [Not Recovered/Not Resolved]
  - Antibody test positive [Not Recovered/Not Resolved]
  - Synovitis [Not Recovered/Not Resolved]
  - Dizziness [Not Recovered/Not Resolved]
  - Nausea [Not Recovered/Not Resolved]
  - Condition aggravated [Not Recovered/Not Resolved]
  - Short stature [Not Recovered/Not Resolved]
  - Adrenal insufficiency [Not Recovered/Not Resolved]
  - C-reactive protein increased [Not Recovered/Not Resolved]
  - Therapy non-responder [Unknown]
  - Arthritis [Not Recovered/Not Resolved]
  - Arthritis [Unknown]
  - Hypokalaemia [Recovered/Resolved]
  - Mobility decreased [Not Recovered/Not Resolved]
  - Obesity [Not Recovered/Not Resolved]
  - Wheelchair user [Unknown]
  - Hypocalcaemia [Recovered/Resolved]
  - Hypotension [Unknown]
  - Vomiting [Not Recovered/Not Resolved]
  - Loss of consciousness [Recovered/Resolved]
  - Polyarthritis [Unknown]
  - Bone density decreased [Not Recovered/Not Resolved]
  - Loss of personal independence in daily activities [Unknown]
  - Gastroenteritis viral [Recovered/Resolved]
  - Pleural effusion [Recovered/Resolved]
  - Pyrexia [Unknown]
  - Drug ineffective [Unknown]
  - Red blood cell sedimentation rate increased [Not Recovered/Not Resolved]
  - Drug specific antibody [Not Recovered/Not Resolved]
  - Septic shock [Not Recovered/Not Resolved]
  - Immunodeficiency [Recovered/Resolved]
  - Liver function test abnormal [Recovered/Resolved]
  - Psoriasis [Not Recovered/Not Resolved]
  - Human antichimeric antibody positive [Not Recovered/Not Resolved]
  - Diarrhoea [Not Recovered/Not Resolved]

NARRATIVE: CASE EVENT DATE: 2005
